FAERS Safety Report 6754761-7 (Version None)
Quarter: 2010Q2

REPORT INFORMATION
  Report Type: 
  Country: None (occurrence: None)
  Receive Date: 20100527
  Receipt Date: 20100519
  Transmission Date: 20101027
  Serious: Yes (Hospitalization, Other)
  Sender: FDA-Public Use
  Company Number: 2010SP027812

PATIENT
  Age: 67 Year
  Sex: Male

DRUGS (2)
  1. RIBAVIRIN [Suspect]
     Indication: HEPATITIS C
     Dosage: PO
     Route: 048
  2. INTERFERON [Suspect]
     Indication: HEPATITIS C

REACTIONS (9)
  - ABASIA [None]
  - AUTOIMMUNE DISORDER [None]
  - CHRONIC INFLAMMATORY DEMYELINATING POLYRADICULONEUROPATHY [None]
  - DIZZINESS [None]
  - EFFUSION [None]
  - ELECTROCARDIOGRAM ST SEGMENT ELEVATION [None]
  - ILLUSION [None]
  - OEDEMA PERIPHERAL [None]
  - PERICARDITIS [None]
